FAERS Safety Report 7348391-6 (Version None)
Quarter: 2011Q1

REPORT INFORMATION
  Report Type: 
  Country: None (occurrence: None)
  Receive Date: 20110311
  Receipt Date: 20110302
  Transmission Date: 20110831
  Serious: Yes (Hospitalization)
  Sender: FDA-Public Use
  Company Number: US-MERCK-1005USA02003

PATIENT
  Age: 75 Year
  Sex: Female

DRUGS (13)
  1. FOSAMAX [Suspect]
     Route: 048
     Dates: start: 20050725, end: 20070901
  2. ADVAIR DISKUS 100/50 [Concomitant]
     Indication: ASTHMA
     Route: 055
     Dates: start: 19950101
  3. VITAMINS (UNSPECIFIED) [Concomitant]
     Route: 065
  4. ADVAIR DISKUS 100/50 [Concomitant]
     Indication: SEASONAL ALLERGY
     Route: 055
     Dates: start: 19950101
  5. THYROID [Concomitant]
     Route: 048
     Dates: start: 19700101
  6. FEXOFENADINE HYDROCHLORIDE [Concomitant]
     Indication: ASTHMA
     Route: 065
     Dates: start: 19950101
  7. BONIVA [Suspect]
     Indication: OSTEOPENIA
     Route: 065
     Dates: start: 20070901, end: 20081201
  8. FOSAMAX [Suspect]
     Indication: OSTEOPOROSIS
     Route: 048
     Dates: start: 19960408, end: 20050725
  9. SINGULAIR [Concomitant]
     Indication: SEASONAL ALLERGY
     Route: 048
     Dates: start: 19950101
  10. FOSAMAX [Suspect]
     Route: 048
     Dates: start: 20050725, end: 20070901
  11. SINGULAIR [Concomitant]
     Indication: ASTHMA
     Route: 048
     Dates: start: 19950101
  12. FOSAMAX [Suspect]
     Indication: OSTEOPENIA
     Route: 048
     Dates: start: 19960408, end: 20050725
  13. FEXOFENADINE HYDROCHLORIDE [Concomitant]
     Indication: SEASONAL ALLERGY
     Route: 065
     Dates: start: 19950101

REACTIONS (2)
  - IMPAIRED HEALING [None]
  - FEMUR FRACTURE [None]
